FAERS Safety Report 8827494 (Version 2)
Quarter: 2013Q1

REPORT INFORMATION
  Report Type: Spontaneous
  Country: US (occurrence: US)
  Receive Date: 20121008
  Receipt Date: 20130329
  Transmission Date: 20140127
  Serious: No
  Sender: FDA-Public Use
  Company Number: US-009507513-1210USA000985

PATIENT
  Age: 54 Year
  Sex: Male
  Weight: 82.86 kg

DRUGS (1)
  1. NEXPLANON [Suspect]

REACTIONS (4)
  - Injury associated with device [Recovered/Resolved]
  - Product quality issue [Unknown]
  - Pain [Recovered/Resolved]
  - Haemorrhage [Recovered/Resolved]
